FAERS Safety Report 4318891-1 (Version None)
Quarter: 2004Q1

REPORT INFORMATION
  Report Type: 
  Country: None (occurrence: None)
  Receive Date: 20040315
  Receipt Date: 20040302
  Transmission Date: 20041129
  Serious: Yes (Death, Other)
  Sender: FDA-Public Use
  Company Number: 2004013793

PATIENT
  Age: 46 Year
  Sex: Female

DRUGS (1)
  1. GEODON [Suspect]
     Dosage: 160
     Dates: start: 20031120

REACTIONS (1)
  - ARRHYTHMIA [None]
